FAERS Safety Report 18641555 (Version 1)
Quarter: 2020Q4

REPORT INFORMATION
  Report Type: Spontaneous
  Country: HU (occurrence: HU)
  Receive Date: 20201221
  Receipt Date: 20201221
  Transmission Date: 20210114
  Serious: Yes (Other)
  Sender: FDA-Public Use
  Company Number: HU-MSNLABS-2020MSNLIT00451

PATIENT

DRUGS (1)
  1. TERIFLUNOMIDE TABLETS 14 MG [Suspect]
     Active Substance: TERIFLUNOMIDE
     Indication: MULTIPLE SCLEROSIS
     Route: 048

REACTIONS (2)
  - Clostridium difficile infection [None]
  - Colitis ulcerative [None]
